FAERS Safety Report 10037922 (Version 2)
Quarter: 2014Q2

REPORT INFORMATION
  Report Type: Spontaneous
  Country: FR (occurrence: None)
  Receive Date: 20140321
  Receipt Date: 20140409
  Transmission Date: 20141212
  Serious: Yes (Life-Threatening)
  Sender: FDA-Public Use
  Company Number: FK201400921

PATIENT
  Age: 49 Year
  Sex: Female

DRUGS (3)
  1. PROPOFOL FRESENIUS [Suspect]
     Indication: INDUCTION OF ANAESTHESIA
     Dosage: 240 MG, 1 IN 1 D, IV (NOT OTHERWISE SPECIFIED)
     Route: 042
     Dates: start: 20140214, end: 20140214
  2. SUFENTANIL [Suspect]
     Indication: INDUCTION AND MAINTENANCE OF ANAESTHESIA
     Route: 042
     Dates: start: 20140214, end: 20140214
  3. ESMERON [Suspect]
     Indication: INDUCTION AND MAINTENANCE OF ANAESTHESIA

REACTIONS (4)
  - Anaphylactic shock [None]
  - Bronchospasm [None]
  - Blood pressure decreased [None]
  - Acute respiratory distress syndrome [None]
